FAERS Safety Report 5235877-3 (Version None)
Quarter: 2007Q1

REPORT INFORMATION
  Report Type: 
  Country: None (occurrence: None)
  Receive Date: 20061208
  Receipt Date: 20060508
  Transmission Date: 20070707
  Serious: Yes (Other)
  Sender: FDA-Public Use
  Company Number: 2006UW08961

PATIENT
  Age: 65 Year
  Sex: Female
  Weight: 72.574 kg

DRUGS (2)
  1. CRESTOR [Suspect]
     Indication: BLOOD CHOLESTEROL INCREASED
     Dosage: 5 MG QD PO
     Route: 047
     Dates: start: 20060201
  2. PRILOSEC [Concomitant]

REACTIONS (1)
  - EPISTAXIS [None]
